FAERS Safety Report 9651433 (Version 1)
Quarter: 2013Q4

REPORT INFORMATION
  Report Type: Spontaneous
  Country: US (occurrence: US)
  Receive Date: 20131029
  Receipt Date: 20131029
  Transmission Date: 20140711
  Serious: Yes (Hospitalization)
  Sender: FDA-Public Use
  Company Number: US-INCYTE CORPORATION-2013IN002523

PATIENT
  Sex: Female

DRUGS (12)
  1. JAKAFI [Suspect]
     Indication: MYELOFIBROSIS
     Dosage: 20 MG, EVERY EVENING
     Route: 048
     Dates: start: 201201
  2. JAKAFI [Suspect]
     Dosage: NOT SPECIFIED
     Route: 048
  3. IMODIUM A-D [Concomitant]
  4. CENTRUM SILVER [Concomitant]
  5. CALTRATE-600 WITH VITAMIN D [Concomitant]
  6. AMLODIPINE BESYLATE [Concomitant]
  7. SYNTHROID [Concomitant]
  8. DIAZEPAM [Concomitant]
  9. FERROUS SULFATE [Concomitant]
  10. TOPROL XL [Concomitant]
  11. PACERONE [Concomitant]
  12. WARFARIN [Concomitant]

REACTIONS (1)
  - Haemorrhage [Unknown]
